FAERS Safety Report 10272918 (Version 1)
Quarter: 2014Q2

REPORT INFORMATION
  Report Type: Spontaneous
  Country: UA (occurrence: None)
  Receive Date: 20140627
  Receipt Date: 20140627
  Transmission Date: 20141212
  Serious: Yes (Death)
  Sender: FDA-Public Use
  Company Number: 2014GB00579

PATIENT
  Sex: 0

DRUGS (2)
  1. GEMCITABINE [Suspect]
     Indication: METASTASES TO BILIARY TRACT
     Dosage: ON DAY 1 AND DAY 8 OF A 21 DAY CYCLE
  2. CISPLATIN [Suspect]
     Indication: HEPATOBILIARY CANCER
     Dosage: ON DAY 1 AND DAY 8 OF OF 21 DAY CYCLE

REACTIONS (1)
  - Pneumonia [None]
